FAERS Safety Report 9211389 (Version 2)
Quarter: 2013Q2

REPORT INFORMATION
  Report Type: Spontaneous
  Country: US (occurrence: US)
  Receive Date: 20130404
  Receipt Date: 20130506
  Transmission Date: 20140414
  Serious: Yes (Hospitalization)
  Sender: FDA-Public Use
  Company Number: US-AMGEN-USASP2013018548

PATIENT
  Age: 61 Year
  Sex: Female
  Weight: 70.48 kg

DRUGS (2)
  1. ENBREL [Suspect]
     Indication: RHEUMATOID ARTHRITIS
     Dosage: 50 MG, QWK
     Dates: start: 20120201
  2. INSULIN [Concomitant]

REACTIONS (4)
  - Pneumonia [Recovered/Resolved]
  - Spinal pain [Not Recovered/Not Resolved]
  - Injection site pain [Recovered/Resolved]
  - Urinary tract infection [Not Recovered/Not Resolved]
